FAERS Safety Report 20782135 (Version 2)
Quarter: 2022Q3

REPORT INFORMATION
  Report Type: Spontaneous
  Country: PL (occurrence: PL)
  Receive Date: 20220504
  Receipt Date: 20220823
  Transmission Date: 20221026
  Serious: Yes (Life-Threatening, Hospitalization, Other)
  Sender: FDA-Public Use
  Company Number: PL-CELGENE-POL-20211205586

PATIENT
  Age: 73 Year
  Sex: Male

DRUGS (41)
  1. AZACITIDINE [Suspect]
     Active Substance: AZACITIDINE
     Indication: Acute myeloid leukaemia
     Route: 058
     Dates: start: 20210809
  2. VENETOCLAX [Suspect]
     Active Substance: VENETOCLAX
     Indication: Acute myeloid leukaemia
     Route: 048
     Dates: start: 20210809, end: 20210809
  3. VENETOCLAX [Suspect]
     Active Substance: VENETOCLAX
     Dosage: FREQUENCY TEXT: NOT PROVIDED?UNKNOWN
     Route: 048
     Dates: start: 20210810, end: 20210812
  4. PEVONEDISTAT [Suspect]
     Active Substance: PEVONEDISTAT
     Indication: Product used for unknown indication
     Route: 048
     Dates: start: 20210809
  5. TRAMADOL [Concomitant]
     Active Substance: TRAMADOL
     Indication: Back pain
     Dosage: UNKNOWN
     Route: 065
     Dates: start: 2020
  6. TRAMADOL [Concomitant]
     Active Substance: TRAMADOL
     Dates: start: 20210101
  7. CIPROFLOXACIN [Concomitant]
     Active Substance: CIPROFLOXACIN
     Indication: Infection prophylaxis
     Route: 065
     Dates: start: 20210715, end: 20210729
  8. CERUTIN [Concomitant]
     Indication: Haemorrhage prophylaxis
     Dosage: UNKNOWN
     Route: 065
     Dates: start: 20210908, end: 20211109
  9. CALCIUM CHLORIDE [Concomitant]
     Active Substance: CALCIUM CHLORIDE
     Indication: Hypocalcaemia
     Dosage: FREQUENCY TEXT: NOT PROVIDED
     Route: 065
     Dates: start: 20210721, end: 20210729
  10. ACYCLOVIR [Concomitant]
     Active Substance: ACYCLOVIR
     Indication: Prophylaxis
     Dosage: UNKNOWN
     Route: 065
     Dates: start: 20210711
  11. PERINDOPRIL [Concomitant]
     Active Substance: PERINDOPRIL
     Indication: Hypertension
     Dosage: UNKNOWN
     Route: 065
     Dates: start: 20100101
  12. OMEPRAZOLE [Concomitant]
     Active Substance: OMEPRAZOLE
     Indication: Dyspepsia
     Dosage: UNKNOWN
     Route: 065
     Dates: start: 20210712
  13. BENSERAZIDE [Concomitant]
     Active Substance: BENSERAZIDE
     Indication: Parkinson^s disease
     Dosage: UNKNOWN
     Route: 065
     Dates: start: 2001
  14. BENSERAZIDE [Concomitant]
     Active Substance: BENSERAZIDE
     Dates: start: 20210101
  15. FORMOTEROL [Concomitant]
     Active Substance: FORMOTEROL
     Indication: Asthma
     Dosage: UNKNOWN
     Route: 065
     Dates: start: 2010
  16. FORMOTEROL [Concomitant]
     Active Substance: FORMOTEROL
     Dates: start: 20210101
  17. SULFAMETHOXAZOLE\TRIMETHOPRIM [Concomitant]
     Active Substance: SULFAMETHOXAZOLE\TRIMETHOPRIM
     Dosage: UNKNOWN
     Route: 048
     Dates: start: 20210712, end: 20210807
  18. SULFAMETHOXAZOLE\TRIMETHOPRIM [Concomitant]
     Active Substance: SULFAMETHOXAZOLE\TRIMETHOPRIM
     Indication: Prophylaxis
     Dosage: UNKNOWN
     Route: 048
     Dates: start: 20210702
  19. ENOXAPARIN [Concomitant]
     Active Substance: ENOXAPARIN
     Indication: Thrombosis prophylaxis
     Dosage: UNKNOWN
     Route: 065
     Dates: start: 20210711, end: 20210816
  20. POTASSIUM CHLORIDE [Concomitant]
     Active Substance: POTASSIUM CHLORIDE
     Indication: Prophylaxis
     Dosage: FREQUENCY TEXT: NOT PROVIDED
     Route: 065
     Dates: start: 20210711, end: 20210729
  21. FLUCONAZOLE [Concomitant]
     Active Substance: FLUCONAZOLE
     Indication: Antifungal prophylaxis
     Dosage: FREQUENCY TEXT: NOT PROVIDED
     Route: 065
     Dates: start: 20210712, end: 20210729
  22. FUROSEMIDE SODIUM [Concomitant]
     Active Substance: FUROSEMIDE SODIUM
     Indication: Hypertension
     Dosage: UNKNOWN
     Route: 065
     Dates: start: 20100101
  23. FUROSEMIDE SODIUM [Concomitant]
     Active Substance: FUROSEMIDE SODIUM
     Indication: Prophylaxis
  24. OMEGA-3 FATTY ACIDS [Concomitant]
     Active Substance: OMEGA-3 FATTY ACIDS
     Indication: Prophylaxis
     Dosage: FREQUENCY TEXT: NOT PROVIDED
     Route: 065
     Dates: start: 20210711, end: 20210729
  25. LACTULOSE [Concomitant]
     Active Substance: LACTULOSE
     Route: 065
     Dates: start: 20210717, end: 20210808
  26. LACTULOSE [Concomitant]
     Active Substance: LACTULOSE
     Indication: Constipation
     Dosage: UNKNOWN
     Route: 065
     Dates: start: 20210716, end: 20210729
  27. HYDROXYUREA [Concomitant]
     Active Substance: HYDROXYUREA
     Indication: Hyperleukocytosis
     Route: 065
     Dates: start: 20210711, end: 20210809
  28. FUROSEMIDE SODIUM [Concomitant]
     Active Substance: FUROSEMIDE SODIUM
     Indication: Prophylaxis
  29. FUROSEMIDE SODIUM [Concomitant]
     Active Substance: FUROSEMIDE SODIUM
     Indication: Hypertension
     Dosage: UNKNOWN
     Route: 065
     Dates: start: 20100101
  30. LACTULOSE [Concomitant]
     Active Substance: LACTULOSE
     Indication: Constipation
     Dosage: UNKNOWN
     Route: 065
     Dates: start: 20210716, end: 20210729
  31. LACTULOSE [Concomitant]
     Active Substance: LACTULOSE
     Dosage: UNKNOWN
     Route: 065
     Dates: start: 20210717, end: 20210808
  32. TAMSULOSIN [Concomitant]
     Active Substance: TAMSULOSIN
     Indication: Benign prostatic hyperplasia
     Route: 065
     Dates: start: 20210101
  33. SULFAMETHOXAZOLE\TRIMETHOPRIM [Concomitant]
     Active Substance: SULFAMETHOXAZOLE\TRIMETHOPRIM
     Indication: Prophylaxis
     Route: 048
     Dates: start: 20210702
  34. SULFAMETHOXAZOLE\TRIMETHOPRIM [Concomitant]
     Active Substance: SULFAMETHOXAZOLE\TRIMETHOPRIM
     Dosage: UNKNOWN
     Route: 048
     Dates: start: 20210712, end: 20210807
  35. BISOPROLOL [Concomitant]
     Active Substance: BISOPROLOL
     Indication: Hypertension
     Route: 065
     Dates: start: 20100101
  36. RUTIN [Concomitant]
     Active Substance: RUTIN
     Indication: Haemorrhage prophylaxis
     Route: 065
     Dates: start: 20210908, end: 20211109
  37. LEVODOPA [Concomitant]
     Active Substance: LEVODOPA
     Indication: Parkinson^s disease
     Route: 065
     Dates: start: 20210101
  38. NICERGOLINE [Concomitant]
     Active Substance: NICERGOLINE
     Indication: Dementia
     Route: 065
     Dates: start: 2001
  39. NICERGOLINE [Concomitant]
     Active Substance: NICERGOLINE
     Dates: start: 20210101
  40. OMEPRAZOLE [Concomitant]
     Active Substance: OMEPRAZOLE
     Indication: Dyspepsia
     Route: 065
     Dates: start: 20210712
  41. CIPROFLOXACIN [Concomitant]
     Active Substance: CIPROFLOXACIN
     Indication: Infection prophylaxis
     Dosage: FREQUENCY TEXT: NOT PROVIDED
     Route: 065
     Dates: start: 20210715, end: 20210729

REACTIONS (2)
  - Acute kidney injury [Recovered/Resolved]
  - Tumour lysis syndrome [Recovered/Resolved]

NARRATIVE: CASE EVENT DATE: 20210809
